FAERS Safety Report 5101988-6 (Version None)
Quarter: 2006Q3

REPORT INFORMATION
  Report Type: 
  Country: None (occurrence: None)
  Receive Date: 20060907
  Receipt Date: 20060829
  Transmission Date: 20061208
  Serious: Yes (Hospitalization)
  Sender: FDA-Public Use
  Company Number: 2006097152

PATIENT
  Age: 63 Year
  Sex: Female
  Weight: 46.7205 kg

DRUGS (11)
  1. SUTENT [Suspect]
     Indication: RENAL CELL CARCINOMA STAGE UNSPECIFIED
     Dosage: 50 MG (50 MG, 1 IN 1 D), ORAL
     Route: 048
     Dates: start: 20060724, end: 20060810
  2. ZOMETA [Concomitant]
  3. ZESTRIL [Concomitant]
  4. ZOFRAN [Concomitant]
  5. ELAVIL [Concomitant]
  6. LORAZEPAM [Concomitant]
  7. VICODIN [Concomitant]
  8. LEXAPRO [Concomitant]
  9. PRILOSEC [Concomitant]
  10. DEXAMETHASONE TAB [Concomitant]
  11. MIRALAX [Concomitant]

REACTIONS (8)
  - ASTHENIA [None]
  - CELLULITIS [None]
  - DUODENAL PERFORATION [None]
  - ERYTHEMA [None]
  - IATROGENIC INJURY [None]
  - INCISION SITE COMPLICATION [None]
  - INFLAMMATION [None]
  - PROCEDURAL COMPLICATION [None]
